FAERS Safety Report 5510743-4 (Version None)
Quarter: 2007Q4

REPORT INFORMATION
  Report Type: 
  Country: None (occurrence: None)
  Receive Date: 20071108
  Receipt Date: 20071029
  Transmission Date: 20080405
  Serious: Yes (Death, Hospitalization)
  Sender: FDA-Public Use
  Company Number: B0483650A

PATIENT
  Age: 52 Year
  Sex: Female

DRUGS (19)
  1. AUGMENTIN [Suspect]
     Dosage: 3G PER DAY
     Route: 065
     Dates: start: 20070112, end: 20070119
  2. FRAXIPARINE [Suspect]
     Indication: DRUG USE FOR UNKNOWN INDICATION
     Route: 065
     Dates: start: 20070120, end: 20070121
  3. FRAXODI [Suspect]
     Indication: DRUG USE FOR UNKNOWN INDICATION
     Dosage: 11400IUAX PER DAY
     Route: 058
     Dates: start: 20070122, end: 20070131
  4. MINI-SINTROM [Suspect]
     Route: 065
     Dates: end: 20070101
  5. PAROXETINE HCL [Concomitant]
     Route: 065
  6. ZOFRAN [Concomitant]
     Route: 065
  7. PRIMPERAN INJ [Concomitant]
     Route: 065
  8. LARGACTIL [Concomitant]
     Route: 065
  9. FOLIC ACID [Concomitant]
     Route: 065
  10. SOLU-MEDROL [Concomitant]
     Route: 065
  11. OXYNORM [Concomitant]
     Route: 065
  12. DURAGESIC [Concomitant]
     Route: 065
  13. SPASFON [Concomitant]
     Route: 065
  14. KETOPROFEN [Concomitant]
     Route: 065
  15. INEXIUM [Concomitant]
     Route: 065
  16. ATARAX [Concomitant]
     Route: 065
  17. IMOVANE [Concomitant]
     Route: 065
  18. NORMACOL [Concomitant]
     Route: 065
  19. DUPHALAC [Concomitant]
     Route: 065

REACTIONS (3)
  - DISEASE PROGRESSION [None]
  - HEPARIN-INDUCED THROMBOCYTOPENIA [None]
  - INTERNATIONAL NORMALISED RATIO INCREASED [None]
